FAERS Safety Report 21951804 (Version 1)
Quarter: 2023Q1

REPORT INFORMATION
  Report Type: Spontaneous
  Country: US (occurrence: US)
  Receive Date: 20230203
  Receipt Date: 20230203
  Transmission Date: 20230418
  Serious: No
  Sender: FDA-Public Use
  Company Number: US-BRISTOL-MYERS SQUIBB COMPANY-2023-009306

PATIENT
  Age: 76 Year
  Sex: Female

DRUGS (1)
  1. POMALYST [Suspect]
     Active Substance: POMALIDOMIDE
     Indication: Plasma cell myeloma
     Dosage: FREQUENCY-AKE ONE CAPSULE BY MOUTH EVERY EVENING FOR21 CONSECUTIVE DAYS THEN STOP FOR 7 CONSECUTIVE
     Route: 048
     Dates: start: 20221229

REACTIONS (1)
  - Ageusia [Unknown]
